FAERS Safety Report 25020193 (Version 2)
Quarter: 2025Q1

REPORT INFORMATION
  Report Type: Spontaneous
  Country: US (occurrence: US)
  Receive Date: 20250227
  Receipt Date: 20250303
  Transmission Date: 20250409
  Serious: Yes (Life-Threatening, Other)
  Sender: PFIZER
  Company Number: US-PFIZER INC-PV202500023434

PATIENT
  Age: 73 Year
  Sex: Female

DRUGS (8)
  1. CARBOPLATIN [Suspect]
     Active Substance: CARBOPLATIN
     Indication: Genital neoplasm malignant female
     Dates: start: 20240328
  2. CARBOPLATIN [Suspect]
     Active Substance: CARBOPLATIN
     Dates: start: 20240524
  3. CARBOPLATIN [Suspect]
     Active Substance: CARBOPLATIN
     Dates: start: 20240617
  4. CARBOPLATIN [Suspect]
     Active Substance: CARBOPLATIN
     Dates: start: 20240708
  5. CARBOPLATIN [Suspect]
     Active Substance: CARBOPLATIN
     Dates: start: 20240729
  6. PACLITAXEL [Suspect]
     Active Substance: PACLITAXEL
     Indication: Genital neoplasm malignant female
     Dates: start: 20240328
  7. PACLITAXEL [Suspect]
     Active Substance: PACLITAXEL
     Dates: start: 20240708
  8. PACLITAXEL [Suspect]
     Active Substance: PACLITAXEL
     Dates: start: 20240729

REACTIONS (1)
  - Cardiac failure acute [Recovered/Resolved]
